FAERS Safety Report 4434801-0 (Version None)
Quarter: 2004Q3

REPORT INFORMATION
  Report Type: 
  Country: None (occurrence: None)
  Receive Date: 20040827
  Receipt Date: 20040730
  Transmission Date: 20050211
  Serious: Yes (Hospitalization)
  Sender: FDA-Public Use
  Company Number: GB-BRISTOL-MYERS SQUIBB COMPANY-12655866

PATIENT
  Age: 36 Year
  Sex: Female

DRUGS (1)
  1. ARIPIPRAZOLE [Suspect]
     Indication: SCHIZOPHRENIA
     Dosage: 15MG 03-OCT-03 TO 19-MAR-04,20MG 20-MAR-04 TO 29-JUN-04, 25MG 30-JUN-04 TO 13-JUL-04
     Route: 048
     Dates: start: 20031003, end: 20040713

REACTIONS (1)
  - SCHIZOPHRENIA [None]
